FAERS Safety Report 14453793 (Version 1)
Quarter: 2018Q1

REPORT INFORMATION
  Report Type: Spontaneous
  Country: US (occurrence: US)
  Receive Date: 20180129
  Receipt Date: 20180129
  Transmission Date: 20180509
  Serious: No
  Sender: FDA-Public Use
  Company Number: US-ENDO PHARMACEUTICALS INC-2017-004293

PATIENT
  Sex: Male

DRUGS (1)
  1. HYDROCODONE/ACETAMINOPHEN 5MG/325MG [Suspect]
     Active Substance: ACETAMINOPHEN\HYDROCODONE
     Indication: PROCEDURAL PAIN
     Dosage: 1 DF, PATIENT TOOK ONE TABLET ONLY
     Route: 048
     Dates: start: 20170801, end: 20170802

REACTIONS (7)
  - Dyspnoea [Recovered/Resolved]
  - Neck pain [Unknown]
  - Chest pain [Recovered/Resolved]
  - Urinary hesitation [Unknown]
  - Oropharyngeal pain [Unknown]
  - Insomnia [Unknown]
  - Treatment noncompliance [Unknown]

NARRATIVE: CASE EVENT DATE: 20170801
